FAERS Safety Report 17307510 (Version 1)
Quarter: 2020Q1

REPORT INFORMATION
  Report Type: Spontaneous
  Country: US (occurrence: US)
  Receive Date: 20200123
  Receipt Date: 20200123
  Transmission Date: 20200409
  Serious: Yes (Death)
  Sender: FDA-Public Use
  Company Number: NVSC2020US016378

PATIENT
  Sex: Female

DRUGS (1)
  1. TRAMETINIB [Suspect]
     Active Substance: TRAMETINIB
     Indication: INVASIVE DUCTAL BREAST CARCINOMA
     Dosage: 2 MG, QD
     Route: 065

REACTIONS (3)
  - Therapeutic response decreased [Unknown]
  - Sudden death [Fatal]
  - Product use in unapproved indication [Unknown]
